FAERS Safety Report 9781473 (Version 2)
Quarter: 2014Q3

REPORT INFORMATION
  Report Type: Other
  Country: IT (occurrence: IT)
  Receive Date: 20131224
  Receipt Date: 20140704
  Transmission Date: 20150326
  Serious: Yes (Death, Hospitalization)
  Sender: FDA-Public Use
  Company Number: IT-BRISTOL-MYERS SQUIBB COMPANY-19934496

PATIENT
  Age: 63 Year
  Sex: Male

DRUGS (3)
  1. REPAGLINIDE. [Suspect]
     Active Substance: REPAGLINIDE
  2. ANAGRELIDE [Suspect]
     Active Substance: ANAGRELIDE
     Dosage: 1MG
  3. METFORMIN HCL [Suspect]
     Active Substance: METFORMIN HYDROCHLORIDE
     Indication: TYPE 2 DIABETES MELLITUS
     Dosage: 850MG

REACTIONS (8)
  - Hyperlactacidaemia [Fatal]
  - Diarrhoea [Fatal]
  - Hypoglycaemia [Fatal]
  - Dyspnoea [Fatal]
  - Hypotension [Fatal]
  - Abdominal pain [Fatal]
  - Metabolic acidosis [Fatal]
  - Tachycardia [Fatal]
